FAERS Safety Report 13059752 (Version 3)
Quarter: 2016Q4

REPORT INFORMATION
  Report Type: Spontaneous
  Country: US (occurrence: US)
  Receive Date: 20161223
  Receipt Date: 20161227
  Transmission Date: 20170207
  Serious: Yes (Hospitalization, Other)
  Sender: FDA-Public Use
  Company Number: US-SA-2016SA228391

PATIENT
  Age: 14 Year
  Sex: Male

DRUGS (2)
  1. ALLOPURINOL. [Suspect]
     Active Substance: ALLOPURINOL
     Route: 065
  2. RASBURICASE [Suspect]
     Active Substance: RASBURICASE
     Indication: TUMOUR LYSIS SYNDROME
     Route: 065

REACTIONS (6)
  - Liver injury [Unknown]
  - Hyperbilirubinaemia [Recovering/Resolving]
  - Haemolytic anaemia [Recovering/Resolving]
  - Haemoglobinuria [Unknown]
  - Hepatosplenomegaly [Unknown]
  - Ocular icterus [Unknown]
